FAERS Safety Report 9646583 (Version 1)
Quarter: 2013Q4

REPORT INFORMATION
  Report Type: Spontaneous
  Country: CA (occurrence: CA)
  Receive Date: 20131025
  Receipt Date: 20131025
  Transmission Date: 20140711
  Serious: Yes (Hospitalization)
  Sender: FDA-Public Use
  Company Number: CA-JNJFOC-20131010677

PATIENT
  Age: 42 Year
  Sex: Female
  Weight: 77.11 kg

DRUGS (2)
  1. NICORETTE QUICKMIST 1MG [Suspect]
     Indication: SMOKING CESSATION THERAPY
     Dosage: 1 SQUIRT EVERY 2 HOURS, ABOUT 5-6 TIMES DAILY
     Route: 048
     Dates: start: 201309
  2. LORAZEPAM [Concomitant]
     Indication: ANXIETY
     Route: 065

REACTIONS (4)
  - Heart rate irregular [Unknown]
  - Blood pressure increased [Not Recovered/Not Resolved]
  - Hypoaesthesia oral [Not Recovered/Not Resolved]
  - Chest pain [Unknown]
